FAERS Safety Report 13068850 (Version 1)
Quarter: 2016Q4

REPORT INFORMATION
  Report Type: Spontaneous
  Country: US (occurrence: US)
  Receive Date: 20161228
  Receipt Date: 20161228
  Transmission Date: 20170207
  Serious: No
  Sender: FDA-Public Use
  Company Number: US-ASTRAZENECA-2016SF33469

PATIENT
  Sex: Female
  Weight: 63.5 kg

DRUGS (2)
  1. CRESTOR [Suspect]
     Active Substance: ROSUVASTATIN CALCIUM
     Indication: BLOOD CHOLESTEROL INCREASED
     Route: 048
  2. CRESTOR [Suspect]
     Active Substance: ROSUVASTATIN CALCIUM
     Indication: BLOOD CHOLESTEROL INCREASED
     Route: 048

REACTIONS (7)
  - Body height decreased [Unknown]
  - Intentional product misuse [Unknown]
  - Off label use [Unknown]
  - Muscle spasms [Unknown]
  - Skin discolouration [Unknown]
  - Headache [Unknown]
  - Pain in extremity [Unknown]
